FAERS Safety Report 13389428 (Version 1)
Quarter: 2017Q1

REPORT INFORMATION
  Report Type: Spontaneous
  Country: US (occurrence: US)
  Receive Date: 20170331
  Receipt Date: 20170331
  Transmission Date: 20170429
  Serious: No
  Sender: FDA-Public Use
  Company Number: US-ASPEN PHARMA TRADING LIMITED US-AS-2017-002266

PATIENT
  Age: 90 Year
  Sex: Male

DRUGS (1)
  1. LEUKERAN [Suspect]
     Active Substance: CHLORAMBUCIL
     Indication: PRODUCT USED FOR UNKNOWN INDICATION
     Dosage: TOOK A DOSE THIS MORNING
     Route: 048
     Dates: start: 20170321

REACTIONS (1)
  - Incorrect product storage [Unknown]
